FAERS Safety Report 7780780-8 (Version None)
Quarter: 2011Q3

REPORT INFORMATION
  Report Type: 
  Country: None (occurrence: None)
  Receive Date: 20110927
  Receipt Date: 20110922
  Transmission Date: 20111222
  Serious: Yes (Other)
  Sender: FDA-Public Use
  Company Number: US-PFIZER INC-2011226564

PATIENT
  Sex: Female

DRUGS (3)
  1. PREMARIN [Suspect]
     Indication: OFF LABEL USE
     Dosage: UNK
  2. PREMARIN [Suspect]
     Indication: BONE DISORDER
  3. PREMARIN [Suspect]
     Indication: CARDIAC DISORDER

REACTIONS (1)
  - VAGINAL HAEMORRHAGE [None]
